FAERS Safety Report 4311326-4 (Version None)
Quarter: 2004Q1

REPORT INFORMATION
  Report Type: 
  Country: None (occurrence: None)
  Receive Date: 20040302
  Receipt Date: 20040302
  Transmission Date: 20041129
  Serious: Yes (Hospitalization)
  Sender: FDA-Public Use
  Company Number: None

PATIENT
  Age: 77 Year
  Sex: Male
  Weight: 86.2 kg

DRUGS (7)
  1. ASPIRIN [Suspect]
  2. ALLOPURINOL [Concomitant]
  3. FOLIC ACID [Concomitant]
  4. METOPROLOL [Concomitant]
  5. MAXZIDE [Concomitant]
  6. THIAMINE [Concomitant]
  7. PSYLLIUM MUCILLOID POWD [Concomitant]

REACTIONS (3)
  - HAEMATEMESIS [None]
  - MELAENA [None]
  - UPPER GASTROINTESTINAL HAEMORRHAGE [None]
